FAERS Safety Report 7276790-X (Version None)
Quarter: 2011Q1

REPORT INFORMATION
  Report Type: 
  Country: None (occurrence: None)
  Receive Date: 20110207
  Receipt Date: 20110126
  Transmission Date: 20110831
  Serious: Yes (Disabling)
  Sender: FDA-Public Use
  Company Number: DE-AMGEN-DEUCT2011006173

PATIENT
  Age: 46 Year
  Sex: Female
  Weight: 91 kg

DRUGS (7)
  1. ARAVA [Concomitant]
     Indication: RHEUMATOID ARTHRITIS
     Dosage: 20 MG, 1X/DAY
  2. ETANERCEPT [Suspect]
     Indication: RHEUMATOID ARTHRITIS
     Dosage: 50 MG, QWK
     Dates: start: 20101206, end: 20110101
  3. VIGANTOLETTEN ^BAYER^ [Concomitant]
     Dosage: 1000 IU, 1X/DAY
  4. LEVOTHYROXINE SODIUM [Concomitant]
     Indication: THYROID DISORDER
     Dosage: 1 DF, 1X/DAY
  5. SYMBICORT [Concomitant]
     Indication: ASTHMA
     Dosage: 320 MG, 2X/DAY
     Dates: start: 19930101
  6. DIOVANE [Concomitant]
     Indication: HYPERTENSION
     Dosage: 80 MG, IN THE MORNING AND EVENING
  7. PREDNISONE [Concomitant]
     Indication: RHEUMATOID ARTHRITIS
     Dosage: 7.5 MG, 1X/DAY

REACTIONS (2)
  - PRURITUS [None]
  - DERMATITIS ALLERGIC [None]
